FAERS Safety Report 8367095-4 (Version None)
Quarter: 2012Q1

REPORT INFORMATION
  Report Type: 
  Country: None (occurrence: None)
  Receive Date: 20120323
  Receipt Date: 20110909
  Transmission Date: 20120608
  Serious: Yes (Other)
  Sender: FDA-Public Use
  Company Number: 163-21880-11073245

PATIENT
  Age: 50 Year
  Sex: Female

DRUGS (8)
  1. ULTRAM (TRAMDOL HYDROCHLORIDE) [Concomitant]
  2. ACYCLOVIR [Concomitant]
  3. PREDNISONE (PREDISONE) [Concomitant]
  4. ALOXI (PALODOSETRON HYDROCHLORIDE) [Concomitant]
  5. VELCADE [Concomitant]
  6. REVLIMID [Suspect]
     Indication: MULTIPLE MYELOMA
     Dosage: SEE IMAGE
     Route: 048
     Dates: start: 20110717
  7. REVLIMID [Suspect]
     Indication: MULTIPLE MYELOMA
     Dosage: SEE IMAGE
     Route: 048
     Dates: start: 20110713
  8. REVLIMID [Suspect]
     Indication: MULTIPLE MYELOMA
     Dosage: SEE IMAGE
     Route: 048
     Dates: start: 20110823

REACTIONS (5)
  - SWELLING [None]
  - PRURITUS [None]
  - PYREXIA [None]
  - HYPERSENSITIVITY [None]
  - RASH [None]
